FAERS Safety Report 13739150 (Version 1)
Quarter: 2017Q3

REPORT INFORMATION
  Report Type: Report from Study
  Country: US (occurrence: US)
  Receive Date: 20170710
  Receipt Date: 20170710
  Transmission Date: 20171127
  Serious: No
  Sender: FDA-Public Use
  Company Number: US-SAOL THERAPEUTICS-2017SAO00646

PATIENT
  Age: 40 Year
  Sex: Female

DRUGS (15)
  1. COMPOUNDED BACLOFEN [Suspect]
     Active Substance: BACLOFEN
     Dosage: 375.35 ?G, \DAY
     Dates: start: 20100505
  2. DROPERIDOL. [Suspect]
     Active Substance: DROPERIDOL
     Dosage: 93.84 ?G, \DAY
     Dates: start: 20100505
  3. DILAUDID [Suspect]
     Active Substance: HYDROMORPHONE HYDROCHLORIDE
     Dosage: 5.8312 MG, \DAY
     Route: 037
  4. BUPIVACAINE. [Suspect]
     Active Substance: BUPIVACAINE
     Dosage: 35.069 MG, \DAY
     Route: 037
     Dates: start: 20100503
  5. CLONIDINE. [Suspect]
     Active Substance: CLONIDINE
     Dosage: 175.34 ?G, \DAY
     Route: 037
     Dates: start: 20100503
  6. CLONIDINE. [Suspect]
     Active Substance: CLONIDINE
     Dosage: 150.14 MG, \DAY
     Dates: start: 20100505
  7. BUPIVACAINE. [Suspect]
     Active Substance: BUPIVACAINE
     Dosage: 30.028 MG, \DAY
     Dates: start: 20100505
  8. CLONIDINE. [Suspect]
     Active Substance: CLONIDINE
     Dosage: 291.56 ?G, \DAY
     Route: 037
     Dates: start: 20100503
  9. COMPOUNDED BACLOFEN [Suspect]
     Active Substance: BACLOFEN
     Dosage: 728.9 ?G, \DAY
     Route: 037
     Dates: start: 20100503
  10. COMPOUNDED BACLOFEN [Suspect]
     Active Substance: BACLOFEN
     Dosage: 438.36 ?G, \DAY
     Route: 037
     Dates: start: 20100503
  11. DILAUDID [Suspect]
     Active Substance: HYDROMORPHONE HYDROCHLORIDE
     Dosage: 3.5069 MG, \DAY
     Route: 037
     Dates: start: 20100503, end: 20100503
  12. DILAUDID [Suspect]
     Active Substance: HYDROMORPHONE HYDROCHLORIDE
     Dosage: 3.0028 MG, /DAY
     Dates: start: 20100505
  13. BUPIVACAINE. [Suspect]
     Active Substance: BUPIVACAINE
     Dosage: 58.312 MG, \DAY
     Route: 037
     Dates: start: 20100503
  14. DROPERIDOL. [Suspect]
     Active Substance: DROPERIDOL
     Dosage: 109.59 ?G, \DAY
     Route: 037
     Dates: start: 20100503
  15. DROPERIDOL. [Suspect]
     Active Substance: DROPERIDOL
     Dosage: 182.23 ?G, \DAY
     Route: 037
     Dates: start: 20100503

REACTIONS (1)
  - Implant site pain [Recovered/Resolved]

NARRATIVE: CASE EVENT DATE: 20100610
